FAERS Safety Report 5862349-5 (Version None)
Quarter: 2008Q3

REPORT INFORMATION
  Report Type: 
  Country: None (occurrence: None)
  Receive Date: 20080828
  Receipt Date: 20080825
  Transmission Date: 20090109
  Serious: Yes (Life-Threatening, Hospitalization, Other)
  Sender: FDA-Public Use
  Company Number: JP-BRISTOL-MYERS SQUIBB COMPANY-14314819

PATIENT
  Age: 70 Year
  Sex: Female

DRUGS (2)
  1. TAXOL [Suspect]
     Indication: UTERINE CANCER
     Dosage: FROM 25JUL07-09JAN08 RECEIVED 12 COURSES OF TAXOL 80MG/M2 BIWEEKLY
     Route: 041
     Dates: start: 20080820, end: 20080820
  2. PARAPLATIN [Suspect]
     Indication: UTERINE CANCER
     Route: 041
     Dates: start: 20080820, end: 20080820

REACTIONS (1)
  - ELECTROLYTE IMBALANCE [None]
